FAERS Safety Report 17267923 (Version 1)
Quarter: 2020Q1

REPORT INFORMATION
  Report Type: Spontaneous
  Country: US (occurrence: US)
  Receive Date: 20200114
  Receipt Date: 20200114
  Transmission Date: 20200409
  Serious: Yes (Life-Threatening, Hospitalization)
  Sender: FDA-Public Use
  Company Number: None

PATIENT
  Age: 75 Year
  Sex: Female

DRUGS (3)
  1. ENOXAPARIN [Suspect]
     Active Substance: ENOXAPARIN
  2. APIXABAN [Suspect]
     Active Substance: APIXABAN
  3. CLOPIDOGREL [Suspect]
     Active Substance: CLOPIDOGREL BISULFATE

REACTIONS (18)
  - Supraventricular tachycardia [None]
  - Haematocrit decreased [None]
  - Sepsis [None]
  - Nausea [None]
  - Abdominal wall haematoma [None]
  - Retroperitoneal haemorrhage [None]
  - Atrial fibrillation [None]
  - Asthenia [None]
  - Transfusion [None]
  - Hypotension [None]
  - Transient ischaemic attack [None]
  - Pneumonia [None]
  - Cough [None]
  - Muscle haemorrhage [None]
  - Chronic obstructive pulmonary disease [None]
  - Chest pain [None]
  - Abdominal pain [None]
  - Haemoglobin decreased [None]

NARRATIVE: CASE EVENT DATE: 20190624
